FAERS Safety Report 7085582-6 (Version None)
Quarter: 2010Q4

REPORT INFORMATION
  Report Type: 
  Country: None (occurrence: None)
  Receive Date: 20101027
  Receipt Date: 20101012
  Transmission Date: 20110411
  Serious: No
  Sender: FDA-Public Use
  Company Number: C-10-0235-W

PATIENT
  Sex: Male

DRUGS (1)
  1. METOPROLOL SUCCINATE EXTENDED RELEASE [Suspect]

REACTIONS (2)
  - HYPOAESTHESIA [None]
  - PALPITATIONS [None]
